FAERS Safety Report 12047310 (Version 1)
Quarter: 2016Q1

REPORT INFORMATION
  Report Type: Spontaneous
  Country: US (occurrence: US)
  Receive Date: 20160208
  Receipt Date: 20160208
  Transmission Date: 20160526
  Serious: No
  Sender: FDA-Public Use
  Company Number: PHEH2016US002865

PATIENT
  Sex: Female

DRUGS (6)
  1. RECLAST [Interacting]
     Active Substance: ZOLEDRONIC ACID
     Dosage: SECOND INFUSION
     Route: 065
     Dates: start: 2012
  2. LORAZEPAM. [Concomitant]
     Active Substance: LORAZEPAM
     Indication: ANXIETY
     Route: 065
  3. PROZAC [Concomitant]
     Active Substance: FLUOXETINE HYDROCHLORIDE
     Indication: DEPRESSION
     Route: 065
  4. HYDROCODONE/ACETAMINOPHEN [Interacting]
     Active Substance: ACETAMINOPHEN\HYDROCODONE
     Indication: PAIN
     Route: 065
  5. RECLAST [Suspect]
     Active Substance: ZOLEDRONIC ACID
     Indication: PRODUCT USED FOR UNKNOWN INDICATION
     Dosage: FIRST INFUSION
     Route: 065
     Dates: start: 2011
  6. RECLAST [Interacting]
     Active Substance: ZOLEDRONIC ACID
     Dosage: THIRD INFUSION
     Route: 065
     Dates: start: 20130322

REACTIONS (7)
  - Tooth discolouration [Unknown]
  - Tooth loss [Unknown]
  - Pain [Unknown]
  - Sinusitis [Unknown]
  - Tooth disorder [Unknown]
  - Malaise [Unknown]
  - Bone pain [Unknown]
